FAERS Safety Report 6865498-8 (Version None)
Quarter: 2010Q3

REPORT INFORMATION
  Report Type: 
  Country: None (occurrence: None)
  Receive Date: 20100721
  Receipt Date: 20080616
  Transmission Date: 20110219
  Serious: No
  Sender: FDA-Public Use
  Company Number: US-PFIZER INC-2008034623

PATIENT
  Sex: Male

DRUGS (11)
  1. CHANTIX [Suspect]
     Indication: SMOKING CESSATION THERAPY
     Route: 048
     Dates: start: 20070723
  2. ATENOLOL [Concomitant]
  3. PRILOSEC [Concomitant]
  4. LOPID [Concomitant]
  5. GABAPENTIN [Concomitant]
  6. ATIVAN [Concomitant]
  7. METFORMIN [Concomitant]
  8. ELAVIL [Concomitant]
  9. AMBIEN [Concomitant]
  10. PAXIL [Concomitant]
  11. SYNTHROID [Concomitant]

REACTIONS (1)
  - DRUG INEFFECTIVE [None]
